FAERS Safety Report 5691526-1 (Version None)
Quarter: 2008Q2

REPORT INFORMATION
  Report Type: 
  Country: None (occurrence: None)
  Receive Date: 20080402
  Receipt Date: 20080324
  Transmission Date: 20081010
  Serious: Yes (Other)
  Sender: FDA-Public Use
  Company Number: CA-JNJFOC-20080300225

PATIENT
  Sex: Male

DRUGS (2)
  1. REMICADE [Suspect]
     Route: 042
  2. REMICADE [Suspect]
     Indication: PSORIASIS
     Route: 042

REACTIONS (9)
  - BLOOD PRESSURE INCREASED [None]
  - CHILLS [None]
  - FATIGUE [None]
  - FLUSHING [None]
  - INFUSION RELATED REACTION [None]
  - LIP SWELLING [None]
  - PRURITUS [None]
  - PYREXIA [None]
  - TACHYCARDIA [None]
